FAERS Safety Report 7378759-3 (Version None)
Quarter: 2011Q1

REPORT INFORMATION
  Report Type: 
  Country: None (occurrence: None)
  Receive Date: 20110328
  Receipt Date: 20110317
  Transmission Date: 20110831
  Serious: Yes (Hospitalization)
  Sender: FDA-Public Use
  Company Number: US-ASTRAZENECA-2011SE04428

PATIENT
  Age: 63 Year
  Sex: Female
  Weight: 86.2 kg

DRUGS (12)
  1. SEROQUEL [Suspect]
     Route: 048
     Dates: start: 20100801, end: 20101201
  2. VALIUM [Concomitant]
  3. ACTOS [Concomitant]
  4. NORVASC [Concomitant]
  5. SIMVASTATIN [Concomitant]
  6. SOMA [Concomitant]
  7. ELAVIL [Concomitant]
  8. PAXIL [Concomitant]
  9. SEROQUEL [Suspect]
     Indication: POST-TRAUMATIC STRESS DISORDER
     Route: 048
     Dates: start: 20090101
  10. SEROQUEL [Suspect]
     Route: 048
     Dates: start: 20110201, end: 20110316
  11. ACETAMINOPHEN [Concomitant]
     Dosage: AS NEEDED
  12. METFORMIN HCL [Concomitant]

REACTIONS (10)
  - HALLUCINATIONS, MIXED [None]
  - DRUG DOSE OMISSION [None]
  - AGITATION [None]
  - PNEUMONIA [None]
  - FEELING ABNORMAL [None]
  - TREMOR [None]
  - LOSS OF CONSCIOUSNESS [None]
  - NERVOUSNESS [None]
  - OFF LABEL USE [None]
  - INSOMNIA [None]
